FAERS Safety Report 21202289 (Version 1)
Quarter: 2022Q3

REPORT INFORMATION
  Report Type: Spontaneous
  Country: US (occurrence: None)
  Receive Date: 20220811
  Receipt Date: 20220811
  Transmission Date: 20221027
  Serious: Yes (Hospitalization, Other)
  Sender: FDA-Public Use
  Company Number: None

PATIENT
  Age: 34 Year
  Sex: Female
  Weight: 54.45 kg

DRUGS (1)
  1. XARELTO [Suspect]
     Active Substance: RIVAROXABAN
     Indication: Subclavian vein thrombosis
     Dosage: OTHER QUANTITY : 1 TABLET(S);?
     Route: 048
     Dates: start: 20220110, end: 20220805

REACTIONS (9)
  - Chest discomfort [None]
  - Dyspnoea [None]
  - Palpitations [None]
  - Anxiety [None]
  - Panic attack [None]
  - Arthralgia [None]
  - Eating disorder [None]
  - Loss of personal independence in daily activities [None]
  - Vaginal haemorrhage [None]

NARRATIVE: CASE EVENT DATE: 20220110
